FAERS Safety Report 15896378 (Version 1)
Quarter: 2019Q1

REPORT INFORMATION
  Report Type: Spontaneous
  Country: JP (occurrence: JP)
  Receive Date: 20190131
  Receipt Date: 20190131
  Transmission Date: 20190417
  Serious: Yes (Hospitalization)
  Sender: FDA-Public Use
  Company Number: JP-ROCHE-2257010

PATIENT
  Age: 56 Year
  Sex: Female

DRUGS (5)
  1. CALONAL [Concomitant]
     Active Substance: ACETAMINOPHEN
  2. XOFLUZA [Suspect]
     Active Substance: BALOXAVIR MARBOXIL
     Indication: INFLUENZA
     Route: 048
     Dates: start: 20190122, end: 20190122
  3. ASTOMIN (JAPAN) [Concomitant]
  4. L-CARBOCISTEINE [Concomitant]
     Active Substance: CARBOCYSTEINE
  5. TRANEXAMIC ACID. [Concomitant]
     Active Substance: TRANEXAMIC ACID

REACTIONS (1)
  - Seizure [Recovered/Resolved]

NARRATIVE: CASE EVENT DATE: 20190122
